FAERS Safety Report 9076262 (Version 1)
Quarter: 2013Q1

REPORT INFORMATION
  Report Type: Report from Study
  Country: PR (occurrence: PR)
  Receive Date: 20130129
  Receipt Date: 20130129
  Transmission Date: 20140127
  Serious: No
  Sender: FDA-Public Use
  Company Number: PR-ABBOTT-12P-131-0927066-00

PATIENT
  Sex: Female
  Weight: 71.28 kg

DRUGS (4)
  1. HUMIRA 40 MG/0.8 ML PEN [Suspect]
     Indication: RHEUMATOID ARTHRITIS
     Route: 058
     Dates: start: 20111214
  2. LYRICA [Concomitant]
     Indication: PRODUCT USED FOR UNKNOWN INDICATION
     Route: 048
  3. ANAPROX [Concomitant]
     Indication: PAIN
     Dosage: 1 TABLET BID, AS REQUIRED
     Route: 048
  4. VITAMIN B COMPLEX [Concomitant]
     Indication: VITAMIN SUPPLEMENTATION
     Dosage: 1 TABLET DAILY
     Route: 048

REACTIONS (2)
  - Influenza [Recovered/Resolved]
  - Drug ineffective [Recovered/Resolved]
